FAERS Safety Report 19861002 (Version 1)
Quarter: 2021Q3

REPORT INFORMATION
  Report Type: Spontaneous
  Country: IN (occurrence: IN)
  Receive Date: 20210921
  Receipt Date: 20210921
  Transmission Date: 20211014
  Serious: Yes (Other)
  Sender: FDA-Public Use
  Company Number: NVSC2021IN210728

PATIENT
  Age: 67 Year
  Sex: Female

DRUGS (1)
  1. PAGENAX [Suspect]
     Active Substance: BROLUCIZUMAB
     Indication: NEOVASCULAR AGE-RELATED MACULAR DEGENERATION
     Dosage: UNK
     Route: 065
     Dates: start: 20210910

REACTIONS (2)
  - Scleritis [Unknown]
  - Eye inflammation [Unknown]
